FAERS Safety Report 5945616-6 (Version None)
Quarter: 2008Q4

REPORT INFORMATION
  Report Type: 
  Country: None (occurrence: None)
  Receive Date: 20081107
  Receipt Date: 20081028
  Transmission Date: 20090506
  Serious: Yes (Other)
  Sender: FDA-Public Use
  Company Number: GB-PFIZER INC-2008091342

PATIENT
  Age: 59 Year
  Sex: Female
  Weight: 62 kg

DRUGS (5)
  1. CHAMPIX [Suspect]
     Indication: SMOKING CESSATION THERAPY
     Route: 048
     Dates: start: 20080905, end: 20081012
  2. BECLOMETHASONE DIPROPIONATE [Concomitant]
     Route: 055
     Dates: start: 20080401
  3. KLIOGEST ^NOVO INDUSTRI^ [Concomitant]
     Route: 048
     Dates: start: 20050101
  4. ALBUTEROL SULFATE [Concomitant]
     Route: 055
     Dates: start: 20030901
  5. ZOPICLONE [Concomitant]
     Route: 048
     Dates: start: 20000801

REACTIONS (1)
  - PARANOIA [None]
